FAERS Safety Report 24062157 (Version 1)
Quarter: 2024Q3

REPORT INFORMATION
  Report Type: Spontaneous
  Country: US (occurrence: None)
  Receive Date: 20240707
  Receipt Date: 20240707
  Transmission Date: 20241017
  Serious: Yes (Other)
  Sender: Public
  Company Number: None

PATIENT
  Age: 66 Year
  Sex: Male
  Weight: 69.75 kg

DRUGS (6)
  1. MONTELUKAST SODIUM [Suspect]
     Active Substance: MONTELUKAST SODIUM
     Indication: Asthma
     Dosage: 1 TABLWET AT BEDTIME ORAL
     Route: 048
     Dates: start: 20240705, end: 20240706
  2. ALBUTEROL [Concomitant]
     Active Substance: ALBUTEROL
  3. FLOVENT [Concomitant]
     Active Substance: FLUTICASONE PROPIONATE
  4. MULTI-VITAMIN [Concomitant]
     Active Substance: .ALPHA.-TOCOPHEROL ACETATE, DL-\ASCORBIC ACID\CYANOCOBALAMIN\FLUORIDE ION\FOLIC ACID\NIACIN\PYRIDOXI
  5. VITAMIN D3 [Concomitant]
     Active Substance: CHOLECALCIFEROL
  6. METHYLCOBALAMIN [Concomitant]
     Active Substance: METHYLCOBALAMIN

REACTIONS (8)
  - Palpitations [None]
  - Swelling face [None]
  - Agitation [None]
  - Anxiety [None]
  - Depression [None]
  - Pruritus [None]
  - Insomnia [None]
  - Abnormal dreams [None]

NARRATIVE: CASE EVENT DATE: 20240705
